FAERS Safety Report 8300589 (Version 2)
Quarter: 2013Q3

REPORT INFORMATION
  Report Type: Spontaneous
  Country: US (occurrence: US)
  Receive Date: 20111219
  Receipt Date: 20130804
  Transmission Date: 20140515
  Serious: No
  Sender: FDA-Public Use
  Company Number: US-ASTRAZENECA-2011SE15131

PATIENT
  Sex: Female

DRUGS (1)
  1. CRESTOR [Suspect]
     Route: 048

REACTIONS (7)
  - Hypoaesthesia [Unknown]
  - Toothache [Unknown]
  - Fear of disease [Unknown]
  - Anger [Unknown]
  - Pain in extremity [Unknown]
  - Myalgia [Unknown]
  - Diabetes mellitus [Unknown]
